FAERS Safety Report 17462922 (Version 1)
Quarter: 2020Q1

REPORT INFORMATION
  Report Type: Spontaneous
  Country: US (occurrence: US)
  Receive Date: 20191122
  Receipt Date: 20191122
  Transmission Date: 20200409
  Serious: Yes (Hospitalization)
  Sender: FDA-Public Use
  Company Number: None

PATIENT
  Age: 47 Year
  Sex: Male

DRUGS (5)
  1. PRILOSEC [Concomitant]
     Active Substance: OMEPRAZOLE MAGNESIUM
  2. VAPING CBD OIL [Suspect]
     Active Substance: CANNABIDIOL\DEVICE\HERBALS
  3. DANK KING LOUIE [.DELTA.8-TETRAHYDROCANNABINOL\DEVICE\HERBALS] [Suspect]
     Active Substance: .DELTA.8-TETRAHYDROCANNABINOL\DEVICE\HERBALS
  4. THC VAPE [Suspect]
     Active Substance: .DELTA.8-TETRAHYDROCANNABINOL\DEVICE\HERBALS
  5. MARIJUANA VAPE [Suspect]
     Active Substance: CANNABIS SATIVA SUBSP. INDICA TOP\DEVICE

REACTIONS (6)
  - Pyrexia [None]
  - Cough [None]
  - Chills [None]
  - Myalgia [None]
  - Influenza [None]
  - Night sweats [None]
